FAERS Safety Report 18967351 (Version 1)
Quarter: 2021Q1

REPORT INFORMATION
  Report Type: Spontaneous
  Country: GB (occurrence: US)
  Receive Date: 20210304
  Receipt Date: 20210304
  Transmission Date: 20210420
  Serious: No
  Sender: FDA-Public Use
  Company Number: GB-009507513-2103USA001121

PATIENT
  Age: 80 Year
  Sex: Female

DRUGS (1)
  1. STROMECTOL [Suspect]
     Active Substance: IVERMECTIN
     Indication: COVID-19
     Dosage: UNK
     Route: 048

REACTIONS (1)
  - Drug effective for unapproved indication [Unknown]
